FAERS Safety Report 26167309 (Version 1)
Quarter: 2025Q4

REPORT INFORMATION
  Report Type: Spontaneous
  Country: CN (occurrence: CN)
  Receive Date: 20251217
  Receipt Date: 20251217
  Transmission Date: 20260117
  Serious: Yes (Hospitalization, Other)
  Sender: BAXTER
  Company Number: None

PATIENT
  Age: 37 Year
  Sex: Female
  Weight: 53 kg

DRUGS (6)
  1. CYCLOPHOSPHAMIDE [Suspect]
     Active Substance: CYCLOPHOSPHAMIDE
     Indication: Breast cancer female
     Dosage: 0.2 G, QD (WITH 250 ML FLEXIBLE BAG OF 0.9% SODIUM CHLORIDE INJECTION), IVGTT
     Route: 041
     Dates: start: 20251126, end: 20251127
  2. SODIUM CHLORIDE [Suspect]
     Active Substance: SODIUM CHLORIDE
     Dosage: 0.9% NS 250 ML, QD (INJECTION), [FLEXIBLE BAG], WITH (ENDOXAN) CYCLOPHOSPHAMIDE FOR INJECTION, IVGTT
     Route: 041
     Dates: start: 20251126, end: 20251127
  3. SODIUM CHLORIDE [Suspect]
     Active Substance: SODIUM CHLORIDE
     Dosage: 0.9% NS 250 ML, QD (INJECTION), [FLEXIBLE BAG], WITH (TIAN LUN) DOCETAXEL, IVGTT
     Route: 041
     Dates: start: 20251127, end: 20251127
  4. DEXTROSE [Suspect]
     Active Substance: DEXTROSE MONOHYDRATE
     Dosage: 5% GS 500 ML, QD (INJECTION), [FLEXIBLE BAG], WITH (YI BEI SHUANG) DOXORUBICIN HYDROCHLORIDE LIPOSOM
     Route: 041
     Dates: start: 20251127, end: 20251127
  5. DOCETAXEL [Suspect]
     Active Substance: DOCETAXEL
     Indication: Breast cancer female
     Dosage: 97 MG, QD (TIAN LUN), (WITH 250 ML FLEXIBLE BAG OF 0.9% SODIUM CHLORIDE INJECTION), IVGTT
     Route: 041
     Dates: start: 20251127, end: 20251127
  6. DOXORUBICIN HYDROCHLORIDE [Suspect]
     Active Substance: DOXORUBICIN HYDROCHLORIDE
     Indication: Breast cancer female
     Dosage: 40 MG, QD (YI BEI SHUANG), (WITH 500 ML FLEXIBLE BAG OF 5% GLUCOSE INJECTION), IVGTT
     Route: 041
     Dates: start: 20251127, end: 20251127

REACTIONS (3)
  - Myelosuppression [Recovering/Resolving]
  - Anaemia [Unknown]
  - Pyrexia [Recovering/Resolving]

NARRATIVE: CASE EVENT DATE: 20251203
